FAERS Safety Report 19279902 (Version 5)
Quarter: 2022Q2

REPORT INFORMATION
  Report Type: Report from Study
  Country: US (occurrence: None)
  Receive Date: 20210520
  Receipt Date: 20220624
  Transmission Date: 20220721
  Serious: Yes (Other)
  Sender: FDA-Public Use
  Company Number: US-ROCHE-2830722

PATIENT
  Age: 63 Year
  Sex: Male
  Weight: 103.4 kg

DRUGS (40)
  1. OCRELIZUMAB [Suspect]
     Active Substance: OCRELIZUMAB
     Indication: Relapsing-remitting multiple sclerosis
     Dosage: TOTAL VOLUME 200 ML
     Route: 042
     Dates: start: 20120223, end: 20120223
  2. OCRELIZUMAB [Suspect]
     Active Substance: OCRELIZUMAB
     Dosage: TOTAL VOLUME 200 ML
     Route: 042
     Dates: start: 20120308, end: 20120308
  3. OCRELIZUMAB [Suspect]
     Active Substance: OCRELIZUMAB
     Dosage: TOTAL VOLUME 520 ML
     Route: 042
     Dates: start: 20120809, end: 20120809
  4. OCRELIZUMAB [Suspect]
     Active Substance: OCRELIZUMAB
     Dosage: TOTAL VOLUME 520 ML
     Route: 042
     Dates: start: 20130124, end: 20130124
  5. OCRELIZUMAB [Suspect]
     Active Substance: OCRELIZUMAB
     Dosage: TOTAL VOLUME 520 ML
     Route: 042
     Dates: start: 20130711, end: 20130711
  6. PLACEBO [Suspect]
     Active Substance: UNSPECIFIED INGREDIENT
     Indication: Relapsing-remitting multiple sclerosis
     Route: 058
     Dates: start: 20120223, end: 20120223
  7. PLACEBO [Suspect]
     Active Substance: UNSPECIFIED INGREDIENT
     Route: 058
     Dates: start: 20140109, end: 20140109
  8. OCRELIZUMAB [Suspect]
     Active Substance: OCRELIZUMAB
     Indication: Relapsing-remitting multiple sclerosis
     Dosage: TOTAL VOLUME 260 ML
     Route: 042
     Dates: start: 20140109, end: 20140109
  9. OCRELIZUMAB [Suspect]
     Active Substance: OCRELIZUMAB
     Dosage: TOTAL VOLUME 260 ML
     Route: 042
     Dates: start: 20140127, end: 20140127
  10. OCRELIZUMAB [Suspect]
     Active Substance: OCRELIZUMAB
     Dosage: SUBSEQUENT DOSE (TOTAL VOLUME 520 ML) RECEIVED ON 11/DEC/2014, 28/MAY/2015, 09/NOV/2015, 28/APR/2016
     Route: 042
     Dates: start: 20140626, end: 20140626
  11. ACETAMINOPHEN [Concomitant]
     Active Substance: ACETAMINOPHEN
     Dosage: SUBSEQUENT DOSE ON 08/MAR/2012, 09/AUG/2012, 09/JAN/2014, 27/JAN/2014, 28/MAY/2015, 09/NOV/2015, 28/
     Dates: start: 20120223
  12. DIPHENHYDRAMINE [Concomitant]
     Active Substance: DIPHENHYDRAMINE
     Dosage: SUBSEQUENT DOSE ON 08/MAR/2012, 09/AUG/2012, 11/JUL/2013, 27/JAN/2014, 26/JUN/2014, 11/DEC/2014, 28/
     Dates: start: 20140223
  13. METHYLPREDNISOLONE [Concomitant]
     Active Substance: METHYLPREDNISOLONE
     Dosage: SUBSEQUENT DOSE ON 08MAR2012, 09AUG2012, 24JAN2013, 11JUL2013, 09JAN2014, 27JAN2014, 26JUN2014, 11DE
     Dates: start: 20120223, end: 20120223
  14. TYLENOL [Concomitant]
     Active Substance: ACETAMINOPHEN
     Dosage: SUBSEQUENT DOSE ON 11JUL2013, 26JUN2014, 11DEC2014, 13OCT2016, 25JUL2019
     Dates: start: 20130124
  15. BENADRYL [Concomitant]
     Active Substance: DIPHENHYDRAMINE HYDROCHLORIDE
     Dates: start: 20190725
  16. IBUPROFEN [Concomitant]
     Active Substance: IBUPROFEN
  17. LEVOFLOXACIN [Concomitant]
     Active Substance: LEVOFLOXACIN
     Indication: Nasopharyngitis
  18. LEVOFLOXACIN [Concomitant]
     Active Substance: LEVOFLOXACIN
     Indication: Cough
  19. ZOLOFT [Concomitant]
     Active Substance: SERTRALINE HYDROCHLORIDE
     Indication: Anxiety
  20. ALBUTEROL SULFATE [Concomitant]
     Active Substance: ALBUTEROL SULFATE
     Indication: Asthma
  21. AMPYRA [Concomitant]
     Active Substance: DALFAMPRIDINE
     Indication: Ataxia
  22. XARELTO [Concomitant]
     Active Substance: RIVAROXABAN
  23. ASPIRIN [Concomitant]
     Active Substance: ASPIRIN
  24. FLONASE [Concomitant]
     Active Substance: FLUTICASONE PROPIONATE
     Indication: Chronic sinusitis
  25. VIAGRA [Concomitant]
     Active Substance: SILDENAFIL CITRATE
  26. MODAFINIL [Concomitant]
     Active Substance: MODAFINIL
     Indication: Fatigue
  27. PREDNISONE [Concomitant]
     Active Substance: PREDNISONE
     Indication: Pneumonia
     Dosage: THERAPY DATES- 13/MAY/2021, 15/MAY/2021, 17/MAY/2021, 19/MAY/2021
     Dates: start: 20210510
  28. COZAAR [Concomitant]
     Active Substance: LOSARTAN POTASSIUM
  29. SPIRONOLACTONE [Concomitant]
     Active Substance: SPIRONOLACTONE
     Indication: Hypertension
  30. NORVASC [Concomitant]
     Active Substance: AMLODIPINE BESYLATE
     Indication: Hypertension
  31. AMLODIPINE [Concomitant]
     Active Substance: AMLODIPINE BESYLATE
  32. AMBIEN [Concomitant]
     Active Substance: ZOLPIDEM TARTRATE
     Indication: Insomnia
  33. MELATONIN [Concomitant]
     Active Substance: MELATONIN
  34. ANDROGEL [Concomitant]
     Active Substance: TESTOSTERONE
     Indication: Blood testosterone decreased
  35. BACLOFEN [Concomitant]
     Active Substance: BACLOFEN
  36. CLARITIN [Concomitant]
     Active Substance: LORATADINE
     Indication: Seasonal allergy
  37. VITAMIN B COMPLEX [Concomitant]
     Active Substance: CYANOCOBALAMIN\DEXPANTHENOL\NIACINAMIDE\PYRIDOXINE HYDROCHLORIDE\RIBOFLAVIN 5^-PHOSPHATE SODIUM\THIA
  38. MAGNESIUM GLYCINATE [Concomitant]
     Active Substance: MAGNESIUM GLYCINATE
  39. BACLOFEN [Concomitant]
     Active Substance: BACLOFEN
     Indication: Muscle spasticity
  40. CEFUROXIME [Concomitant]
     Active Substance: CEFUROXIME
     Dates: start: 20141204

REACTIONS (1)
  - Pneumonia [Recovered/Resolved]

NARRATIVE: CASE EVENT DATE: 20210510
